FAERS Safety Report 4850410-3 (Version None)
Quarter: 2005Q4

REPORT INFORMATION
  Report Type: 
  Country: None (occurrence: None)
  Receive Date: 20051123
  Receipt Date: 20051011
  Transmission Date: 20060501
  Serious: No
  Sender: FDA-Public Use
  Company Number: TPA2005A01209

PATIENT
  Age: 67 Year
  Sex: Female
  Weight: 63.5036 kg

DRUGS (6)
  1. ROZEREM [Suspect]
     Indication: INSOMNIA
     Dosage: 8 MG, HS, PER ORAL
     Route: 048
     Dates: start: 20051005, end: 20051006
  2. DIOVAN (VALSARTAN) (160 MILLIGRAM) [Concomitant]
  3. LIPITOR [Concomitant]
  4. ZETIA (EZETIMIBE) (10 MILLIGRAM) [Concomitant]
  5. LEXAPRO [Concomitant]
  6. HYDROCHLOROTHIAZIDE (HYDROCHLOROTHIAZIDE)(25 MILLIGRAM) [Concomitant]

REACTIONS (3)
  - ASTHENIA [None]
  - DRUG INEFFECTIVE [None]
  - LOSS OF CONTROL OF LEGS [None]
